FAERS Safety Report 8921909 (Version 1)
Quarter: 2012Q4

REPORT INFORMATION
  Report Type: 
  Country: CO (occurrence: CO)
  Receive Date: 20121121
  Receipt Date: 20121121
  Transmission Date: 20130627
  Serious: Yes (Other)
  Sender: FDA-Public Use
  Company Number: CO-PFIZER INC-2012291184

PATIENT
  Age: 61 Year
  Sex: Female

DRUGS (5)
  1. NORVAS [Suspect]
     Indication: HYPERTENSION ARTERIAL
     Dosage: 5 mg, 1x/day
     Route: 048
     Dates: start: 1986
  2. NORVAS [Suspect]
     Dosage: 5 mg, 1x/day
     Route: 048
     Dates: start: 201208
  3. CHONDROITIN/GLUCOSAMINE [Concomitant]
     Indication: JOINT DISORDER
     Dosage: 1200mg+1500mg, 1x/day
     Route: 048
     Dates: start: 2010
  4. CALCIUM [Concomitant]
     Route: 065
  5. IBANDRONIC ACID [Concomitant]
     Dosage: 150 mg, UNK

REACTIONS (4)
  - Road traffic accident [Unknown]
  - Multiple fractures [Unknown]
  - Carpal tunnel decompression [Recovering/Resolving]
  - Fibromyalgia [Unknown]
